FAERS Safety Report 7048203-4 (Version None)
Quarter: 2010Q4

REPORT INFORMATION
  Report Type: 
  Country: None (occurrence: None)
  Receive Date: 20101015
  Receipt Date: 20101004
  Transmission Date: 20110411
  Serious: Yes (Hospitalization, Disabling, Other)
  Sender: FDA-Public Use
  Company Number: PHEH2004US10391

PATIENT
  Sex: Male
  Weight: 78.912 kg

DRUGS (52)
  1. ZOMETA [Suspect]
     Indication: PROSTATE CANCER
     Dosage: 4 MG, Q 4 WEEKS
     Route: 042
     Dates: start: 20021127, end: 20040924
  2. DECADRON [Concomitant]
     Dates: start: 20020729, end: 20020930
  3. RADIATION THERAPY [Concomitant]
     Dosage: 6660 CGI TO PELVIS
     Dates: start: 20021223, end: 20030213
  4. LISINOPRIL AND HYDROCHLOROTHIAZIDE [Concomitant]
     Dosage: 12.5/20 MG
  5. VITAMIN D [Concomitant]
  6. SELENIUM [Concomitant]
  7. LYCOPENE [Concomitant]
  8. CELECOXIB [Concomitant]
  9. DIVALPROEX SODIUM [Concomitant]
     Dosage: 50 MG, UNK
  10. ALLOPURINOL [Concomitant]
     Dosage: 300 MG, UNK
  11. ATENOLOL [Concomitant]
     Dosage: 50 MG, UNK
  12. VITAMIN E [Concomitant]
  13. ZESTORETIC [Concomitant]
     Dosage: 20/25 MG
  14. CRESTOR [Concomitant]
     Dosage: 10 MG, UNK
  15. VERAPAMIL [Concomitant]
     Dosage: 240 MG, QD
  16. VASOTEC [Concomitant]
     Dosage: 10 MG, QD
  17. TERAZOSIN HCL [Concomitant]
  18. FUROSEMIDE [Concomitant]
  19. CALCITRIOL [Concomitant]
  20. DIAZEPAM [Concomitant]
  21. SIMVASTATIN [Concomitant]
  22. BICALUTAMIDE [Concomitant]
  23. ACETAMINOPHEN AND HYDROCODONE BITARTRATE [Concomitant]
  24. HYDROCHLOROTHIAZIDE [Concomitant]
  25. ENALAPRIL MALEATE [Concomitant]
  26. PENTOXIFYLLINE [Concomitant]
  27. CYANOCOBALAMIN W/FOLIC ACID/PYRIDOXINE [Concomitant]
  28. ROSUVASTATIN CALCIUM [Concomitant]
  29. FISH OIL [Concomitant]
  30. INFLUENZA VACCINE [Concomitant]
  31. PNEUMOCOCCAL VACCINE [Concomitant]
  32. TD (ADULT) ^CONNAUGHT^ [Concomitant]
  33. DEPAKOTE [Concomitant]
  34. AVODART [Concomitant]
  35. VICODIN [Concomitant]
  36. DOSTINEX [Concomitant]
  37. LEUKINE [Concomitant]
  38. KETOCONAZOLE [Concomitant]
  39. HYDROCORTISONE [Concomitant]
  40. CARDURA                                 /JOR/ [Concomitant]
  41. SODIUM PHENYLBUTYRATE [Concomitant]
  42. LIPITOR [Concomitant]
  43. MINERAL TAB [Concomitant]
  44. CELEBREX [Concomitant]
  45. SANDOSTATIN [Concomitant]
  46. LOVAZA [Concomitant]
  47. CALCIUM [Concomitant]
  48. SOY ISOFLAVONES [Concomitant]
  49. VIVELLE [Concomitant]
  50. ASPIRIN [Concomitant]
  51. MULTI-VITAMINS [Concomitant]
  52. POTASSIUM [Concomitant]

REACTIONS (66)
  - ABSCESS DRAINAGE [None]
  - ANAEMIA [None]
  - AORTIC CALCIFICATION [None]
  - ARTHRITIS [None]
  - ATRIOVENTRICULAR BLOCK FIRST DEGREE [None]
  - BASAL CELL CARCINOMA [None]
  - BLOOD GLUCOSE INCREASED [None]
  - BLOOD UREA INCREASED [None]
  - BONE DENSITY DECREASED [None]
  - BONE DISORDER [None]
  - BONE LESION [None]
  - CARDIOMEGALY [None]
  - CELLULITIS [None]
  - CENTRAL NERVOUS SYSTEM NEOPLASM [None]
  - CLAVICLE FRACTURE [None]
  - CONTUSION [None]
  - DECREASED APPETITE [None]
  - DEEP VEIN THROMBOSIS [None]
  - DENTAL PROSTHESIS USER [None]
  - ELECTROCARDIOGRAM POOR R-WAVE PROGRESSION [None]
  - ENDODONTIC PROCEDURE [None]
  - FALL [None]
  - FATIGUE [None]
  - GYNAECOMASTIA [None]
  - HAEMORRHAGE [None]
  - HOT FLUSH [None]
  - INFECTION [None]
  - INJURY [None]
  - JAW OPERATION [None]
  - LOOSE TOOTH [None]
  - LYMPHADENOPATHY [None]
  - LYMPHOCYTE COUNT DECREASED [None]
  - METASTASES TO LYMPH NODES [None]
  - METASTASES TO REPRODUCTIVE ORGAN [None]
  - METASTASIS [None]
  - MUCOSAL ULCERATION [None]
  - NEOPLASM MALIGNANT [None]
  - OEDEMA PERIPHERAL [None]
  - ORAL PAIN [None]
  - OSTEOARTHRITIS [None]
  - OSTEOMYELITIS [None]
  - OSTEONECROSIS OF JAW [None]
  - OSTEOSCLEROSIS [None]
  - PAIN IN JAW [None]
  - PLATELET COUNT DECREASED [None]
  - PROSTATE CANCER METASTATIC [None]
  - PROSTATIC SPECIFIC ANTIGEN INCREASED [None]
  - PROTHROMBIN TIME PROLONGED [None]
  - PULMONARY EMBOLISM [None]
  - PURULENCE [None]
  - PYREXIA [None]
  - RETROPERITONEAL LYMPHADENOPATHY [None]
  - RIB FRACTURE [None]
  - ROTATOR CUFF SYNDROME [None]
  - SINUS BRADYCARDIA [None]
  - SINUS DISORDER [None]
  - SKIN LESION [None]
  - SKIN NEOPLASM EXCISION [None]
  - SYNCOPE [None]
  - TENDON PAIN [None]
  - TOOTH DISORDER [None]
  - TOOTH EXTRACTION [None]
  - TOOTH INFECTION [None]
  - URINARY INCONTINENCE [None]
  - WEIGHT DECREASED [None]
  - WOUND [None]
